FAERS Safety Report 10189035 (Version 1)
Quarter: 2014Q2

REPORT INFORMATION
  Report Type: Other
  Country: GB (occurrence: GB)
  Receive Date: 20140522
  Receipt Date: 20140522
  Transmission Date: 20141212
  Serious: Yes (Other)
  Sender: FDA-Public Use
  Company Number: GB-ASTELLAS-2014EU005559

PATIENT
  Age: 67 Year
  Sex: Female

DRUGS (1)
  1. BETMIGA [Suspect]
     Indication: POLLAKIURIA
     Route: 048
     Dates: end: 20140428

REACTIONS (2)
  - Depression [Recovered/Resolved]
  - Weight increased [Recovered/Resolved]
